FAERS Safety Report 8317636-8 (Version None)
Quarter: 2012Q2

REPORT INFORMATION
  Report Type: 
  Country: None (occurrence: None)
  Receive Date: 20120427
  Receipt Date: 20111128
  Transmission Date: 20120825
  Serious: Yes (Hospitalization)
  Sender: FDA-Public Use
  Company Number: US-GLAXOSMITHKLINE-A0955266A

PATIENT
  Age: 36 Year
  Sex: Female

DRUGS (3)
  1. ONDANSETRON [Suspect]
     Indication: PROPHYLAXIS OF NAUSEA AND VOMITING
     Dosage: 1TAB AS REQUIRED
     Route: 048
     Dates: start: 20111101, end: 20111121
  2. NO CONCURRENT MEDICATION [Concomitant]
  3. ONDANSETRON [Suspect]
     Route: 042
     Dates: start: 20111121

REACTIONS (4)
  - OFF LABEL USE [None]
  - DRUG INEFFECTIVE [None]
  - DRUG EFFECT DECREASED [None]
  - MATERNAL EXPOSURE DURING PREGNANCY [None]
